FAERS Safety Report 5024385-0 (Version None)
Quarter: 2006Q2

REPORT INFORMATION
  Report Type: 
  Country: None (occurrence: None)
  Receive Date: 20060613
  Receipt Date: 20060531
  Transmission Date: 20061013
  Serious: Yes (Other)
  Sender: FDA-Public Use
  Company Number: PHHO2006BR09194

PATIENT
  Age: 60 Year
  Sex: Female
  Weight: 82 kg

DRUGS (1)
  1. ZELMAC / HTF 919A [Suspect]
     Indication: CONSTIPATION
     Dosage: 6 MG, BID
     Route: 048
     Dates: start: 20060401

REACTIONS (12)
  - ANAL INJURY [None]
  - BURNING SENSATION [None]
  - FATIGUE [None]
  - INCREASED APPETITE [None]
  - MOUTH INJURY [None]
  - ORAL PAIN [None]
  - PRURITUS [None]
  - SKIN DISORDER [None]
  - SOMNOLENCE [None]
  - WEIGHT INCREASED [None]
  - WOUND COMPLICATION [None]
  - WOUND HAEMORRHAGE [None]
